FAERS Safety Report 20807584 (Version 1)
Quarter: 2022Q2

REPORT INFORMATION
  Report Type: Spontaneous
  Country: IT (occurrence: IT)
  Receive Date: 20220510
  Receipt Date: 20220510
  Transmission Date: 20220721
  Serious: Yes (Other)
  Sender: FDA-Public Use
  Company Number: None

PATIENT
  Age: 74 Year
  Sex: Male

DRUGS (5)
  1. DAPTOMYCIN [Suspect]
     Active Substance: DAPTOMYCIN
     Indication: Intervertebral discitis
     Route: 042
     Dates: start: 20211021, end: 20211112
  2. RIFAMPIN [Concomitant]
     Active Substance: RIFAMPIN
     Indication: Intervertebral discitis
     Route: 048
     Dates: start: 20211029, end: 20211112
  3. FOSFOMYCIN [Concomitant]
     Active Substance: FOSFOMYCIN
     Indication: Intervertebral discitis
     Dates: start: 20211025, end: 20211029
  4. OXACILLIN [Concomitant]
     Active Substance: OXACILLIN SODIUM
     Indication: Intervertebral discitis
     Route: 042
     Dates: start: 20211029, end: 20211112
  5. PIPERACILLIN AND TAZOBACTAM [Concomitant]
     Active Substance: PIPERACILLIN SODIUM\TAZOBACTAM SODIUM
     Indication: Intervertebral discitis
     Route: 042
     Dates: start: 20211021, end: 20211025

REACTIONS (3)
  - Pneumonia [Recovering/Resolving]
  - Eosinophilic pneumonia [Recovering/Resolving]
  - Off label use [Unknown]

NARRATIVE: CASE EVENT DATE: 20211115
